FAERS Safety Report 4982844-0 (Version None)
Quarter: 2006Q2

REPORT INFORMATION
  Report Type: 
  Country: None (occurrence: None)
  Receive Date: 20060420
  Receipt Date: 20060413
  Transmission Date: 20061013
  Serious: Yes (Other)
  Sender: FDA-Public Use
  Company Number: 2006050807

PATIENT
  Age: 69 Year
  Sex: Male
  Weight: 72.5755 kg

DRUGS (5)
  1. LYRICA [Suspect]
     Indication: NEUROPATHY
     Dosage: 100 MG (50 MG, 2 IN 1 D) ORAL
     Route: 048
     Dates: start: 20060301
  2. GABAPENTIN [Suspect]
     Indication: NEUROPATHY
     Dosage: 3 IN 1 D, ORAL
     Route: 048
  3. LAMICTAL (LAMOTRIGIINE) [Concomitant]
  4. ZOCOR [Concomitant]
  5. ALL OTHER THERAPEUTIC PRODUCTS [Concomitant]

REACTIONS (4)
  - DRUG INEFFECTIVE [None]
  - EXOSTOSIS [None]
  - SPINAL COLUMN STENOSIS [None]
  - VISION BLURRED [None]
